FAERS Safety Report 7841392-0 (Version None)
Quarter: 2011Q4

REPORT INFORMATION
  Report Type: 
  Country: None (occurrence: None)
  Receive Date: 20111025
  Receipt Date: 20111013
  Transmission Date: 20120403
  Serious: Yes (Other)
  Sender: FDA-Public Use
  Company Number: SE-JNJFOC-20111006923

PATIENT
  Sex: Female

DRUGS (1)
  1. REMICADE [Suspect]
     Indication: JUVENILE ARTHRITIS
     Dosage: AS NECESSARY
     Route: 042
     Dates: start: 20110328, end: 20111005

REACTIONS (3)
  - FATIGUE [None]
  - URTICARIA [None]
  - PARAESTHESIA [None]
